FAERS Safety Report 8154077-0 (Version None)
Quarter: 2012Q1

REPORT INFORMATION
  Report Type: 
  Country: None (occurrence: None)
  Receive Date: 20120221
  Receipt Date: 20120210
  Transmission Date: 20120608
  Serious: Yes (Death, Hospitalization, Other)
  Sender: FDA-Public Use
  Company Number: JP-MERCK-1112USA02425

PATIENT
  Age: 67 Year
  Sex: Male

DRUGS (6)
  1. AMARYL [Suspect]
     Indication: DIABETES MELLITUS
     Dosage: DIVIDED DOSE FREQUENCY U
     Route: 048
     Dates: start: 20090326, end: 20111201
  2. HYZAAR [Concomitant]
     Indication: HYPERTENSION
     Dosage: 1 ONCE ADMINISTRATION AMOUNT U
     Route: 048
     Dates: end: 20111201
  3. ALDACTONE [Concomitant]
     Indication: HYPERTENSION
     Dosage: DIVIDED DOSE FREQUENCY U
     Route: 048
     Dates: end: 20111201
  4. METFORMIN HCL [Suspect]
     Indication: DIABETES MELLITUS
     Dosage: DIVIDED DOSE FREQUENCY U
     Route: 048
     Dates: start: 20050721, end: 20111201
  5. JANUVIA [Suspect]
     Indication: DIABETES MELLITUS
     Route: 048
     Dates: start: 20110218, end: 20111201
  6. ACTOS [Suspect]
     Indication: DIABETES MELLITUS
     Route: 048
     Dates: start: 20051110, end: 20111201

REACTIONS (2)
  - HEPATIC NEOPLASM [None]
  - HYPOGLYCAEMIA [None]
